FAERS Safety Report 8272927-4 (Version None)
Quarter: 2012Q2

REPORT INFORMATION
  Report Type: 
  Country: None (occurrence: None)
  Receive Date: 20120411
  Receipt Date: 20120329
  Transmission Date: 20120825
  Serious: No
  Sender: FDA-Public Use
  Company Number: US-ELI_LILLY_AND_COMPANY-US201201001475

PATIENT
  Sex: Male
  Weight: 62.585 kg

DRUGS (6)
  1. ABILIFY [Concomitant]
  2. CYMBALTA [Suspect]
     Indication: BIPOLAR DISORDER
     Dosage: 90 MG, QD
     Dates: start: 20100726, end: 20120223
  3. ALPRAZOLAM [Concomitant]
  4. INTERFERON [Concomitant]
     Dosage: UNK
  5. LIPITOR [Concomitant]
  6. PEGASYS [Concomitant]

REACTIONS (2)
  - OFF LABEL USE [None]
  - VISUAL ACUITY REDUCED [None]
